FAERS Safety Report 11529498 (Version 1)
Quarter: 2015Q3

REPORT INFORMATION
  Report Type: Spontaneous
  Country: BR (occurrence: BR)
  Receive Date: 20150921
  Receipt Date: 20150921
  Transmission Date: 20151125
  Serious: Yes (Other)
  Sender: FDA-Public Use
  Company Number: PHHY2015BR112892

PATIENT
  Sex: Female
  Weight: 56 kg

DRUGS (4)
  1. SANDOSTATIN LAR DEPOT [Suspect]
     Active Substance: OCTREOTIDE ACETATE
     Indication: HEPATIC NEOPLASM
     Dosage: 1 DF, QMO
     Route: 030
  2. SANDOSTATIN LAR DEPOT [Suspect]
     Active Substance: OCTREOTIDE ACETATE
     Dosage: 1 DF, EVERY 24 DAYS
     Route: 030
  3. HYDROCHLOROTHIAZIDE. [Concomitant]
     Active Substance: HYDROCHLOROTHIAZIDE
     Indication: HYPERTENSION
     Dosage: 1 DF, QD
     Route: 048
  4. SELOZOK [Concomitant]
     Active Substance: METOPROLOL SUCCINATE
     Indication: HYPERTENSION
     Dosage: 1 DF, QD
     Route: 048

REACTIONS (5)
  - Off label use [Unknown]
  - Osteoarthritis [Recovering/Resolving]
  - Asthenia [Recovering/Resolving]
  - Inappropriate schedule of drug administration [Unknown]
  - Somnolence [Recovering/Resolving]
